FAERS Safety Report 24882981 (Version 1)
Quarter: 2025Q1

REPORT INFORMATION
  Report Type: Spontaneous
  Country: US (occurrence: None)
  Receive Date: 20250123
  Receipt Date: 20250123
  Transmission Date: 20250409
  Serious: Yes (Life-Threatening, Hospitalization, Disabling)
  Sender: FDA-CTU
  Company Number: None

PATIENT
  Age: 77 Year
  Sex: Female
  Weight: 62.55 kg

DRUGS (5)
  1. RECLAST [Suspect]
     Active Substance: ZOLEDRONIC ACID
     Indication: Osteopenia
     Route: 058
     Dates: start: 20241021
  2. ROSUVASTATIN [Concomitant]
     Active Substance: ROSUVASTATIN
  3. VALACYCLOVIR [Concomitant]
     Active Substance: VALACYCLOVIR HYDROCHLORIDE
  4. VITAMIN D [Concomitant]
     Active Substance: VITAMIN D NOS
  5. ZINC [Concomitant]
     Active Substance: ZINC

REACTIONS (22)
  - Infusion related reaction [None]
  - Chest pain [None]
  - Back pain [None]
  - Movement disorder [None]
  - Dyspnoea [None]
  - Pneumonitis [None]
  - Pulmonary oedema [None]
  - Pulmonary contusion [None]
  - Lymphadenopathy [None]
  - Jaw disorder [None]
  - Capripox viral infection [None]
  - Peripheral swelling [None]
  - Joint swelling [None]
  - Eye swelling [None]
  - Tremor [None]
  - Chills [None]
  - Presyncope [None]
  - Asthenia [None]
  - Myalgia [None]
  - Bone pain [None]
  - Pain in extremity [None]
  - Arthralgia [None]

NARRATIVE: CASE EVENT DATE: 20241021
